FAERS Safety Report 20409878 (Version 1)
Quarter: 2022Q1

REPORT INFORMATION
  Report Type: Spontaneous
  Country: US (occurrence: None)
  Receive Date: 20220131
  Receipt Date: 20220131
  Transmission Date: 20220423
  Serious: Yes (Hospitalization, Other)
  Sender: FDA-Public Use
  Company Number: None

PATIENT
  Age: 33 Year
  Sex: Female

DRUGS (3)
  1. COSMETICS [Suspect]
     Active Substance: COSMETICS
     Indication: Dermatitis
     Route: 061
  2. COSMETICS [Suspect]
     Active Substance: COSMETICS
     Route: 061
  3. STEROIDS FOR RASH [Concomitant]

REACTIONS (7)
  - Hypersensitivity [None]
  - Rash [None]
  - Urticaria [None]
  - Swelling [None]
  - Burning sensation [None]
  - Pruritus [None]
  - Insomnia [None]

NARRATIVE: CASE EVENT DATE: 20220117
